FAERS Safety Report 5365719-7 (Version None)
Quarter: 2007Q2

REPORT INFORMATION
  Report Type: 
  Country: None (occurrence: None)
  Receive Date: 20070621
  Receipt Date: 20070615
  Transmission Date: 20071010
  Serious: Yes (Hospitalization)
  Sender: FDA-Public Use
  Company Number: GB-ABBOTT-07P-167-0368663-00

PATIENT
  Sex: Female
  Weight: 66 kg

DRUGS (5)
  1. HUMIRA [Suspect]
     Indication: RHEUMATOID ARTHRITIS
     Route: 058
     Dates: start: 20061011, end: 20061122
  2. RISEDRONATE SODIUM [Concomitant]
     Indication: DRUG USE FOR UNKNOWN INDICATION
     Dates: start: 20020101
  3. DOXAZOSIN MESYLATE [Concomitant]
     Indication: HYPERTENSION
     Dates: start: 19960101
  4. TELMISARTAN [Concomitant]
     Indication: DRUG USE FOR UNKNOWN INDICATION
     Dates: start: 20040101
  5. AMITRIPTYLINE HCL [Concomitant]
     Indication: MUSCLE RELAXANT THERAPY
     Dates: start: 20050101

REACTIONS (7)
  - DRUG ERUPTION [None]
  - LIVEDO RETICULARIS [None]
  - MALAISE [None]
  - RASH MACULO-PAPULAR [None]
  - SKIN LESION [None]
  - VASCULAR SKIN DISORDER [None]
  - VIRAL INFECTION [None]
